FAERS Safety Report 17438594 (Version 1)
Quarter: 2020Q1

REPORT INFORMATION
  Report Type: Spontaneous
  Country: CN (occurrence: CN)
  Receive Date: 20200220
  Receipt Date: 20200220
  Transmission Date: 20200409
  Serious: Yes (Other)
  Sender: FDA-Public Use
  Company Number: CN-BAXTER-2020BAX003517

PATIENT
  Age: 58 Year
  Sex: Female
  Weight: 65 kg

DRUGS (12)
  1. 0.9% SODIUM CHLORIDE INJECTION [Suspect]
     Active Substance: SODIUM CHLORIDE
     Dosage: DOSE RE-INTRODUCED, ENDOXAN POWDER FOR INJECTION + NS
     Route: 042
  2. 0.9% SODIUM CHLORIDE INJECTION [Suspect]
     Active Substance: SODIUM CHLORIDE
     Dosage: 1-2 CHEMOTHERAPIES, AIDASHENG POWDER FOR INJECTION + NS
     Route: 041
  3. ENDOXAN [Suspect]
     Active Substance: CYCLOPHOSPHAMIDE
     Indication: BREAST CANCER FEMALE
     Dosage: 1-2 CHEMOTHERAPIES, ENDOXAN POWDER FOR INJECTION + NS
     Route: 042
  4. ENDOXAN [Suspect]
     Active Substance: CYCLOPHOSPHAMIDE
     Dosage: DOSE RE-INTRODUCED, ENDOXAN POWDER FOR INJECTION + NS
     Route: 042
  5. AIDASHENG [Suspect]
     Active Substance: EPIRUBICIN HYDROCHLORIDE
     Dosage: DOSE RE-INTRODUCED, AIDASHENG POWDER FOR INJECTION + NS
     Route: 041
  6. 0.9% SODIUM CHLORIDE INJECTION [Suspect]
     Active Substance: SODIUM CHLORIDE
     Dosage: THIRD CHEMOTHERAPY, AIDASHENG POWDER FOR INJECTION + NS 100 ML
     Route: 041
     Dates: start: 20191220, end: 20191220
  7. ENDOXAN [Suspect]
     Active Substance: CYCLOPHOSPHAMIDE
     Dosage: THIRD CHEMOTHERAPY, ENDOXAN POWDER FOR INJECTION 800 MG + NS 40 ML
     Route: 042
     Dates: start: 20191220, end: 20191220
  8. 0.9% SODIUM CHLORIDE INJECTION [Suspect]
     Active Substance: SODIUM CHLORIDE
     Dosage: THIRD CHEMOTHERAPY, ENDOXAN POWDER FOR INJECTION 800 MG + NS 40 ML
     Route: 042
     Dates: start: 20191220, end: 20191220
  9. 0.9% SODIUM CHLORIDE INJECTION [Suspect]
     Active Substance: SODIUM CHLORIDE
     Dosage: DOSE RE-INTRODUCED, AIDASHENG POWDER FOR INJECTION + NS
     Route: 041
  10. AIDASHENG [Suspect]
     Active Substance: EPIRUBICIN HYDROCHLORIDE
     Indication: BREAST CANCER FEMALE
     Dosage: 1-2 CHEMOTHERAPIES, AIDASHENG POWDER FOR INJECTION + NS
     Route: 041
  11. 0.9% SODIUM CHLORIDE INJECTION [Suspect]
     Active Substance: SODIUM CHLORIDE
     Indication: MEDICATION DILUTION
     Dosage: 1-2 CHEMOTHERAPIES, ENDOXAN POWDER FOR INJECTION + NS
     Route: 042
  12. AIDASHENG [Suspect]
     Active Substance: EPIRUBICIN HYDROCHLORIDE
     Dosage: THIRD CHEMOTHERAPY, AIDASHENG POWDER FOR INJECTION + NS 100 ML
     Route: 041
     Dates: start: 20191220, end: 20191220

REACTIONS (2)
  - White blood cell count decreased [Recovered/Resolved]
  - Agranulocytosis [Recovered/Resolved]

NARRATIVE: CASE EVENT DATE: 20191227
